FAERS Safety Report 9647699 (Version 2)
Quarter: 2013Q4

REPORT INFORMATION
  Report Type: Spontaneous
  Country: US (occurrence: US)
  Receive Date: 20131028
  Receipt Date: 20131028
  Transmission Date: 20140711
  Serious: No
  Sender: FDA-Public Use
  Company Number: US-009507513-1309USA005584

PATIENT
  Age: 39 Year
  Sex: Female

DRUGS (1)
  1. PREGNYL [Suspect]
     Dosage: ONCE DAILY
     Dates: start: 20130908

REACTIONS (4)
  - Drug dose omission [Unknown]
  - Incorrect product storage [Unknown]
  - Product container issue [Unknown]
  - No adverse event [Unknown]
